FAERS Safety Report 12717154 (Version 2)
Quarter: 2019Q4

REPORT INFORMATION
  Report Type: Spontaneous
  Country: CH (occurrence: CH)
  Receive Date: 20160906
  Receipt Date: 20191220
  Transmission Date: 20200122
  Serious: Yes (Congenital Anomaly)
  Sender: FDA-Public Use
  Company Number: CH-GLAXOSMITHKLINE-CH2016GSK127057

PATIENT

DRUGS (1)
  1. NEOTIGASON [Suspect]
     Active Substance: ACITRETIN
     Indication: PSORIASIS
     Dosage: 10 MG, QD (THE FATHER TOOK ORAL ACITRETIN ONCE)

REACTIONS (3)
  - Paternal exposure before pregnancy [Unknown]
  - Paternal exposure timing unspecified [Unknown]
  - Trisomy 18 [Unknown]

NARRATIVE: CASE EVENT DATE: 201511
